FAERS Safety Report 25041579 (Version 1)
Quarter: 2025Q1

REPORT INFORMATION
  Report Type: Spontaneous
  Country: US (occurrence: US)
  Receive Date: 20250305
  Receipt Date: 20250305
  Transmission Date: 20250409
  Serious: No
  Sender: BAYER HEALTHCARE LLC
  Company Number: US-BAYER-2025A026157

PATIENT

DRUGS (3)
  1. ASTEPRO [Suspect]
     Active Substance: AZELASTINE HYDROCHLORIDE
  2. ASTEPRO [Suspect]
     Active Substance: AZELASTINE HYDROCHLORIDE
  3. FLONASE [Concomitant]
     Active Substance: FLUTICASONE PROPIONATE

REACTIONS (4)
  - Asthenia [Unknown]
  - Wrong technique in product usage process [None]
  - Somnolence [None]
  - Product use issue [None]
